FAERS Safety Report 18488985 (Version 2)
Quarter: 2020Q4

REPORT INFORMATION
  Report Type: Spontaneous
  Country: US (occurrence: US)
  Receive Date: 20201110
  Receipt Date: 20201127
  Transmission Date: 20210114
  Serious: Yes (Other)
  Sender: FDA-Public Use
  Company Number: US-009507513-2011USA003046

PATIENT
  Age: 70 Year
  Sex: Male

DRUGS (2)
  1. KEYTRUDA [Suspect]
     Active Substance: PEMBROLIZUMAB
     Dosage: EIGHT CYCLES
  2. NIVOLUMAB [Concomitant]
     Active Substance: NIVOLUMAB
     Dosage: ONE CYCLE

REACTIONS (3)
  - Rheumatoid vasculitis [Not Recovered/Not Resolved]
  - Cardiac failure acute [Unknown]
  - Interstitial lung disease [Unknown]
